FAERS Safety Report 10855197 (Version 1)
Quarter: 2015Q1

REPORT INFORMATION
  Report Type: Spontaneous
  Country: CA (occurrence: None)
  Receive Date: 20150218
  Receipt Date: 20150218
  Transmission Date: 20150721
  Serious: Yes (Hospitalization)
  Sender: FDA-Public Use
  Company Number: None

PATIENT
  Age: 77 Year
  Sex: Male
  Weight: 68 kg

DRUGS (7)
  1. SIMVASTATIN. [Suspect]
     Active Substance: SIMVASTATIN
     Indication: BLOOD CHOLESTEROL INCREASED
     Dosage: LIFE TIME
     Route: 048
  2. COVERSYL [Concomitant]
     Active Substance: PERINDOPRIL
  3. BABY ASPIRIN [Concomitant]
     Active Substance: ASPIRIN
  4. ALLOPURINOL. [Concomitant]
     Active Substance: ALLOPURINOL
  5. SIMVASTATIN. [Suspect]
     Active Substance: SIMVASTATIN
     Indication: STENT PLACEMENT
     Dosage: LIFE TIME
     Route: 048
  6. SELEGILINE [Concomitant]
     Active Substance: SELEGILINE
  7. PROLOPA [Concomitant]
     Active Substance: BENSERAZIDE\LEVODOPA

REACTIONS (2)
  - Cholecystitis infective [None]
  - Cholecystitis [None]

NARRATIVE: CASE EVENT DATE: 20141129
